FAERS Safety Report 24405879 (Version 1)
Quarter: 2024Q4

REPORT INFORMATION
  Report Type: Spontaneous
  Country: DE (occurrence: DE)
  Receive Date: 20241007
  Receipt Date: 20241007
  Transmission Date: 20250115
  Serious: Yes (Hospitalization, Other)
  Sender: AUROBINDO
  Company Number: DE-SANDOZ-NVSC2023DE070378

PATIENT
  Age: 73 Year
  Sex: Male
  Weight: 75.8 kg

DRUGS (3)
  1. IRINOTECAN [Suspect]
     Active Substance: IRINOTECAN
     Indication: Colorectal cancer metastatic
     Dosage: 343 MILLIGRAM, EVERY 2 WEEK (343 MG, Q2W)
     Route: 042
     Dates: start: 20230131, end: 20230228
  2. FLUOROURACIL [Suspect]
     Active Substance: FLUOROURACIL
     Indication: Colorectal cancer metastatic
     Dosage: 762 MILLIGRAM, EVERY 2 WEEK (762 MG, Q2W)
     Route: 042
     Dates: start: 20230131, end: 20230228
  3. FLUOROURACIL [Suspect]
     Active Substance: FLUOROURACIL
     Dosage: 4575 MILLIGRAM, EVERY 2 WEEK (762 MG, Q2W)
     Route: 042
     Dates: start: 20230131, end: 20230228

REACTIONS (1)
  - Gastroenteritis salmonella [Recovered/Resolved]

NARRATIVE: CASE EVENT DATE: 20230323
